FAERS Safety Report 25804162 (Version 1)
Quarter: 2025Q3

REPORT INFORMATION
  Report Type: Spontaneous
  Country: JP (occurrence: JP)
  Receive Date: 20250915
  Receipt Date: 20250915
  Transmission Date: 20251021
  Serious: Yes (Hospitalization, Other)
  Sender: AMGEN
  Company Number: JP-AMGEN-JPNSP2025180661

PATIENT
  Age: 7 Decade
  Sex: Male

DRUGS (2)
  1. BEVACIZUMAB [Suspect]
     Active Substance: BEVACIZUMAB
     Indication: Hepatocellular carcinoma
     Route: 065
  2. ATEZOLIZUMAB [Concomitant]
     Active Substance: ATEZOLIZUMAB
     Indication: Hepatocellular carcinoma

REACTIONS (6)
  - Oesophageal varices haemorrhage [Unknown]
  - Ascites [Unknown]
  - Bacteraemia [Unknown]
  - Device related infection [Unknown]
  - Gastrooesophageal reflux disease [Unknown]
  - Off label use [Unknown]
